FAERS Safety Report 4552357-9 (Version None)
Quarter: 2005Q1

REPORT INFORMATION
  Report Type: 
  Country: None (occurrence: None)
  Receive Date: 20050114
  Receipt Date: 20040301
  Transmission Date: 20050727
  Serious: No
  Sender: FDA-Public Use
  Company Number: US-GLAXOSMITHKLINE-A0500565A

PATIENT
  Sex: Female

DRUGS (3)
  1. IMITREX [Suspect]
     Indication: DRUG USE FOR UNKNOWN INDICATION
     Route: 058
  2. IMITREX [Suspect]
     Route: 048
  3. MAXALT [Concomitant]
     Indication: PAIN

REACTIONS (1)
  - DRUG INEFFECTIVE [None]
